FAERS Safety Report 7043423-7 (Version None)
Quarter: 2010Q3

REPORT INFORMATION
  Report Type: 
  Country: None (occurrence: None)
  Receive Date: 20100929
  Receipt Date: 20100728
  Transmission Date: 20110219
  Serious: No
  Sender: FDA-Public Use
  Company Number: US-WYE-H16691110

PATIENT
  Sex: Male

DRUGS (1)
  1. PRISTIQ [Suspect]
     Indication: PRODUCT USED FOR UNKNOWN INDICATION
     Dosage: 100 MG, UNSPECIFIED FREQUENCY FROM AN UNKNOWN DATE,  THEN DOSE CHANGED TO 50 MG

REACTIONS (2)
  - DRUG EFFECT DECREASED [None]
  - NONSPECIFIC REACTION [None]
